FAERS Safety Report 21339915 (Version 1)
Quarter: 2022Q3

REPORT INFORMATION
  Report Type: Spontaneous
  Country: IR (occurrence: IR)
  Receive Date: 20220915
  Receipt Date: 20220915
  Transmission Date: 20221027
  Serious: Yes (Other)
  Sender: FDA-Public Use
  Company Number: IR-PADAGIS-2022PAD00370

PATIENT

DRUGS (1)
  1. DOXORUBICIN [Suspect]
     Active Substance: DOXORUBICIN
     Indication: Alveolar soft part sarcoma
     Dosage: 20 MG/M2 WEEKLY FOR 8 CYCLES
     Route: 065

REACTIONS (1)
  - Drug ineffective for unapproved indication [Unknown]
